FAERS Safety Report 24238166 (Version 1)
Quarter: 2024Q3

REPORT INFORMATION
  Report Type: Spontaneous
  Country: US (occurrence: None)
  Receive Date: 20240821
  Receipt Date: 20240821
  Transmission Date: 20241017
  Serious: No
  Sender: Public
  Company Number: None

PATIENT
  Sex: Female

DRUGS (2)
  1. OXBRYTA [Suspect]
     Active Substance: VOXELOTOR
     Dosage: 1500MG ONE TIME A DAY ORALLY
     Route: 048
     Dates: start: 202111
  2. ENDARI [Concomitant]
     Active Substance: GLUTAMINE

REACTIONS (3)
  - Pain [None]
  - Loss of personal independence in daily activities [None]
  - Mobility decreased [None]
